FAERS Safety Report 4971142-7 (Version None)
Quarter: 2006Q1

REPORT INFORMATION
  Report Type: 
  Country: None (occurrence: None)
  Receive Date: 20060223
  Receipt Date: 20050517
  Transmission Date: 20060701
  Serious: Yes (Death)
  Sender: FDA-Public Use
  Company Number: HQWYE784719MAY05

PATIENT
  Age: 56 Year
  Sex: Female

DRUGS (3)
  1. EFFEXOR [Suspect]
     Indication: DEPRESSION
     Dates: start: 20050426, end: 20050426
  2. XANAX [Concomitant]
  3. UNSPECIFIED ANTICONVULSANT (UNSPECIFIED ANTICOVULSANT) [Concomitant]

REACTIONS (2)
  - CONVULSION [None]
  - OVERDOSE [None]
